FAERS Safety Report 17358839 (Version 1)
Quarter: 2020Q1

REPORT INFORMATION
  Report Type: Spontaneous
  Country: US (occurrence: US)
  Receive Date: 20200202
  Receipt Date: 20200202
  Transmission Date: 20200409
  Serious: Yes (Death)
  Sender: FDA-Public Use
  Company Number: US-GLENMARK PHARMACEUTICALS-2020GMK045814

PATIENT
  Age: 65 Year
  Sex: Female

DRUGS (3)
  1. VALPROIC ACID. [Suspect]
     Active Substance: VALPROIC ACID
     Indication: PRODUCT USED FOR UNKNOWN INDICATION
     Dosage: UNK
     Route: 048
  2. RANOLAZINE. [Suspect]
     Active Substance: RANOLAZINE
     Indication: PRODUCT USED FOR UNKNOWN INDICATION
     Dosage: 50 DF, UNK
     Route: 048
  3. QUETIAPINE. [Suspect]
     Active Substance: QUETIAPINE
     Indication: PRODUCT USED FOR UNKNOWN INDICATION
     Dosage: UNK
     Route: 048

REACTIONS (9)
  - Seizure [Fatal]
  - Intentional overdose [Fatal]
  - Hyperhidrosis [Fatal]
  - Completed suicide [Fatal]
  - Toxicity to various agents [Fatal]
  - Pulmonary oedema [Fatal]
  - Somnolence [Fatal]
  - Shock [Fatal]
  - Bradycardia [Fatal]
